FAERS Safety Report 10522711 (Version 2)
Quarter: 2014Q4

REPORT INFORMATION
  Report Type: Spontaneous
  Country: US (occurrence: US)
  Receive Date: 20141016
  Receipt Date: 20141022
  Transmission Date: 20150528
  Serious: No
  Sender: FDA-Public Use
  Company Number: US-ELI_LILLY_AND_COMPANY-US201410003972

PATIENT
  Sex: Female

DRUGS (2)
  1. WARFARIN [Concomitant]
     Active Substance: WARFARIN
     Indication: PRODUCT USED FOR UNKNOWN INDICATION
     Dosage: UNK, UNKNOWN
     Route: 065
  2. TERIPARATIDE [Suspect]
     Active Substance: TERIPARATIDE
     Indication: OSTEOPOROSIS
     Dosage: 20 UG, QD
     Route: 065
     Dates: start: 20141010

REACTIONS (14)
  - Migraine [Unknown]
  - Head discomfort [Unknown]
  - Malaise [Unknown]
  - Nausea [Unknown]
  - Reaction to preservatives [Unknown]
  - Bone pain [Unknown]
  - Muscle rigidity [Unknown]
  - Hyperhidrosis [Recovered/Resolved]
  - Rhinorrhoea [Recovering/Resolving]
  - Somnolence [Unknown]
  - Injection site haemorrhage [Unknown]
  - Vision blurred [Recovering/Resolving]
  - Gait disturbance [Unknown]
  - Eye pain [Unknown]

NARRATIVE: CASE EVENT DATE: 20141010
